FAERS Safety Report 19174573 (Version 1)
Quarter: 2021Q2

REPORT INFORMATION
  Report Type: Report from Study
  Country: US (occurrence: US)
  Receive Date: 20210423
  Receipt Date: 20210423
  Transmission Date: 20210717
  Serious: Yes (Other)
  Sender: FDA-Public Use
  Company Number: US-BRISTOL-MYERS SQUIBB COMPANY-BMS-2021-037468

PATIENT
  Sex: Male

DRUGS (2)
  1. APIXABAN [Suspect]
     Active Substance: APIXABAN
     Indication: PULMONARY EMBOLISM
     Dosage: 4 TABLETS A DAY
     Route: 065
     Dates: start: 202104
  2. APIXABAN [Suspect]
     Active Substance: APIXABAN
     Dosage: TWO TABLETS TWICE A DAY
     Route: 065
     Dates: start: 202104

REACTIONS (3)
  - Cystitis [Unknown]
  - Contusion [Unknown]
  - Vascular rupture [Unknown]
